FAERS Safety Report 21376729 (Version 3)
Quarter: 2022Q4

REPORT INFORMATION
  Report Type: Spontaneous
  Country: AR (occurrence: AR)
  Receive Date: 20220926
  Receipt Date: 20221005
  Transmission Date: 20230113
  Serious: Yes (Hospitalization, Other)
  Sender: FDA-Public Use
  Company Number: AR-BIOMARINAP-AR-2022-145730

PATIENT

DRUGS (3)
  1. PALYNZIQ [Suspect]
     Active Substance: PEGVALIASE-PQPZ
     Indication: Phenylketonuria
     Dosage: 20 MILLIGRAM, QD
     Route: 058
  2. PALYNZIQ [Suspect]
     Active Substance: PEGVALIASE-PQPZ
     Dosage: UNK
     Route: 058
     Dates: start: 20210218
  3. ACETAMINOPHEN [Concomitant]
     Active Substance: ACETAMINOPHEN
     Indication: Premedication

REACTIONS (9)
  - Pneumothorax [Recovering/Resolving]
  - Seizure [Recovering/Resolving]
  - Pneumomediastinum [Recovering/Resolving]
  - Infection [Recovering/Resolving]
  - Dyspnoea [Recovering/Resolving]
  - Generalised oedema [Recovering/Resolving]
  - Bronchospasm [Recovering/Resolving]
  - Secretion discharge [Recovering/Resolving]
  - Erythema [Recovering/Resolving]

NARRATIVE: CASE EVENT DATE: 20220916
